FAERS Safety Report 6508912-X (Version None)
Quarter: 2009Q4

REPORT INFORMATION
  Report Type: 
  Country: None (occurrence: None)
  Receive Date: 20091221
  Receipt Date: 20090915
  Transmission Date: 20100525
  Serious: No
  Sender: FDA-Public Use
  Company Number: US-ASTRAZENECA-2009SE13700

PATIENT
  Sex: Female
  Weight: 104.3 kg

DRUGS (5)
  1. CRESTOR [Suspect]
     Route: 048
  2. METFORMIN HCL [Concomitant]
  3. GENOVIA [Concomitant]
  4. POTASSIUM [Concomitant]
  5. LASIX [Concomitant]

REACTIONS (2)
  - HIGH DENSITY LIPOPROTEIN DECREASED [None]
  - PAIN [None]
